FAERS Safety Report 4307634-3 (Version None)
Quarter: 2004Q1

REPORT INFORMATION
  Report Type: 
  Country: None (occurrence: None)
  Receive Date: 20040227
  Receipt Date: 20040227
  Transmission Date: 20041129
  Serious: Yes (Other)
  Sender: FDA-Public Use
  Company Number: None

PATIENT
  Age: 23 Year
  Sex: Male
  Weight: 99.7913 kg

DRUGS (1)
  1. EFFEXOR XR [Suspect]
     Dosage: 1 EVERY MORN ORAL
     Route: 048

REACTIONS (5)
  - BLINDNESS TRANSIENT [None]
  - DEAFNESS TRANSITORY [None]
  - DRUG WITHDRAWAL SYNDROME [None]
  - FEELING ABNORMAL [None]
  - PARAESTHESIA [None]
